FAERS Safety Report 12632697 (Version 2)
Quarter: 2016Q3

REPORT INFORMATION
  Report Type: Spontaneous
  Country: US (occurrence: US)
  Receive Date: 20160808
  Receipt Date: 20160808
  Transmission Date: 20161109
  Serious: No
  Sender: FDA-Public Use
  Company Number: US-BEH-2015056530

PATIENT
  Sex: Female
  Weight: 108 kg

DRUGS (35)
  1. MULTIVITAMINS WITH MINERALS [Concomitant]
     Active Substance: MINERALS\VITAMINS
  2. NOVOLOG [Concomitant]
     Active Substance: INSULIN ASPART
  3. HIZENTRA [Suspect]
     Active Substance: HUMAN IMMUNOGLOBULIN G
     Indication: IMMUNODEFICIENCY COMMON VARIABLE
     Route: 058
  4. LIOTHYRONINE [Concomitant]
     Active Substance: LIOTHYRONINE
  5. ALBUTEROL SULF HFA [Concomitant]
  6. OXYCODONE [Concomitant]
     Active Substance: OXYCODONE
  7. LIDOCAINE/PRILOCAINE [Concomitant]
     Active Substance: LIDOCAINE\PRILOCAINE
  8. CELEXA [Concomitant]
     Active Substance: CITALOPRAM HYDROBROMIDE
  9. CYANOCOBALAMIN. [Concomitant]
     Active Substance: CYANOCOBALAMIN
  10. GUAIFENESIN. [Concomitant]
     Active Substance: GUAIFENESIN
  11. VITAMIN D [Concomitant]
     Active Substance: CHOLECALCIFEROL
  12. MULTI-B-PLUS [Concomitant]
  13. LISINOPRIL. [Concomitant]
     Active Substance: LISINOPRIL
  14. EPIPEN [Concomitant]
     Active Substance: EPINEPHRINE
  15. COLCHICINE. [Concomitant]
     Active Substance: COLCHICINE
  16. PRILOSEC [Concomitant]
     Active Substance: OMEPRAZOLE MAGNESIUM
  17. DOXYCYCLINE. [Concomitant]
     Active Substance: DOXYCYCLINE
  18. DIFLUCAN [Concomitant]
     Active Substance: FLUCONAZOLE
  19. LEVEMIR [Concomitant]
     Active Substance: INSULIN DETEMIR
  20. VIT C-ROSE HIP [Concomitant]
  21. PREDNISONE. [Concomitant]
     Active Substance: PREDNISONE
  22. HIZENTRA [Suspect]
     Active Substance: HUMAN IMMUNOGLOBULIN G
     Route: 058
  23. ATENOLOL. [Concomitant]
     Active Substance: ATENOLOL
  24. HIZENTRA [Suspect]
     Active Substance: HUMAN IMMUNOGLOBULIN G
     Route: 058
  25. DIPHENHYDRAMINE. [Concomitant]
     Active Substance: DIPHENHYDRAMINE
  26. SPIRONOLACTONE. [Concomitant]
     Active Substance: SPIRONOLACTONE
  27. HYDROCODONE-ACETAMINOPHEN [Concomitant]
     Active Substance: ACETAMINOPHEN\HYDROCODONE
  28. COUMADIN [Concomitant]
     Active Substance: WARFARIN SODIUM
  29. SYNTHROID [Concomitant]
     Active Substance: LEVOTHYROXINE SODIUM
  30. KEFLEX [Concomitant]
     Active Substance: CEPHALEXIN
  31. ACETAMINOPHEN. [Concomitant]
     Active Substance: ACETAMINOPHEN
  32. L-M-X [Concomitant]
  33. PROTONIX [Concomitant]
     Active Substance: PANTOPRAZOLE SODIUM
  34. MAGNESIUM CITRATE. [Concomitant]
     Active Substance: MAGNESIUM CITRATE
  35. ALLOPURINOL. [Concomitant]
     Active Substance: ALLOPURINOL

REACTIONS (1)
  - Bronchitis [Unknown]
